FAERS Safety Report 7966181-8 (Version None)
Quarter: 2011Q4

REPORT INFORMATION
  Report Type: 
  Country: None (occurrence: None)
  Receive Date: 20111208
  Receipt Date: 20111129
  Transmission Date: 20120403
  Serious: Yes (Other)
  Sender: FDA-Public Use
  Company Number: PHHY2011BR96854

PATIENT
  Sex: Female

DRUGS (15)
  1. AMOXICILLIN AND CLAVULANATE POTASSIUM [Concomitant]
     Dosage: 1 DF, Q8H
  2. FORMOTEROL FUMARATE [Suspect]
     Dosage: 1 WHITE CAPSULE AND 1 PINK CAPSULE EVERY 12 HOURS
  3. AAS FOR INFANTS [Concomitant]
  4. FORMOTEROL FUMARATE [Suspect]
     Dosage: 1 WHITE CAPSULE EVERY 12 HOURS
  5. ALBUTEROL SULFATE AUTOHALER [Concomitant]
     Dosage: 4 OT, Q4H (APPLICATIONS)
  6. VERAPAMIL [Concomitant]
     Indication: BLOOD PRESSURE
     Dosage: 3 DF, QD
  7. SIMVASTATIN [Concomitant]
     Dosage: 50 MG, QD
  8. CLONAZEPAM [Concomitant]
     Indication: DEPRESSION
  9. ALPHAGAN [Concomitant]
     Indication: GLAUCOMA
  10. AZOPT [Concomitant]
     Indication: GLAUCOMA
  11. PREDNISONE TAB [Concomitant]
  12. TRAVATAN [Concomitant]
     Indication: GLAUCOMA
  13. ISOSORBIDE MONONITRATE [Concomitant]
     Indication: CARDIAC DISORDER
  14. LOSARTAN POTASSIUM [Concomitant]
     Indication: BLOOD PRESSURE
     Dosage: 1 DF, QD
  15. CALCIUM CARBONATE [Concomitant]
     Indication: BONE DISORDER

REACTIONS (6)
  - GLAUCOMA [None]
  - HEART RATE INCREASED [None]
  - COUGH [None]
  - TREMOR [None]
  - THROAT IRRITATION [None]
  - DYSSTASIA [None]
